FAERS Safety Report 7739304-3 (Version None)
Quarter: 2011Q3

REPORT INFORMATION
  Report Type: 
  Country: None (occurrence: None)
  Receive Date: 20110909
  Receipt Date: 20110125
  Transmission Date: 20111222
  Serious: No
  Sender: FDA-Public Use
  Company Number: US-BAYER-2011-009995

PATIENT
  Age: 27 Year
  Sex: Female

DRUGS (1)
  1. MIRENA [Suspect]
     Indication: CONTRACEPTION
     Dosage: 20 MCG/24HR, CONT
     Route: 015
     Dates: start: 20101216, end: 20101216

REACTIONS (3)
  - POST PROCEDURAL DISCOMFORT [None]
  - UNINTENTIONAL MEDICAL DEVICE REMOVAL BY PATIENT [None]
  - MEDICAL DEVICE DISCOMFORT [None]
